FAERS Safety Report 10089507 (Version 1)
Quarter: 2014Q2

REPORT INFORMATION
  Report Type: Spontaneous
  Country: US (occurrence: US)
  Receive Date: 20140421
  Receipt Date: 20140421
  Transmission Date: 20141212
  Serious: Yes (Other)
  Sender: FDA-Public Use
  Company Number: US-ELI_LILLY_AND_COMPANY-US201404002593

PATIENT
  Sex: Female

DRUGS (1)
  1. CYMBALTA [Suspect]
     Indication: PRODUCT USED FOR UNKNOWN INDICATION
     Route: 065

REACTIONS (8)
  - Pulmonary embolism [Unknown]
  - Glaucoma [Unknown]
  - Exfoliative rash [Unknown]
  - Intraocular pressure increased [Unknown]
  - Arthropod bite [Unknown]
  - Micturition urgency [Unknown]
  - Eye pain [Unknown]
  - Headache [Unknown]
